FAERS Safety Report 16872134 (Version 1)
Quarter: 2019Q4

REPORT INFORMATION
  Report Type: Spontaneous
  Country: IT (occurrence: IT)
  Receive Date: 20191001
  Receipt Date: 20191001
  Transmission Date: 20200122
  Serious: Yes (Life-Threatening, Hospitalization, Other)
  Sender: FDA-Public Use
  Company Number: IT-AUROBINDO-AUR-APL-2019-063560

PATIENT
  Age: 31 Year
  Sex: Female

DRUGS (8)
  1. METOCLOPRAMIDE. [Suspect]
     Active Substance: METOCLOPRAMIDE
     Indication: ANTIEMETIC SUPPORTIVE CARE
     Dosage: UNK
     Route: 065
  2. DESFLURANE. [Suspect]
     Active Substance: DESFLURANE
     Indication: MAINTENANCE OF ANAESTHESIA
     Dosage: UNK, 4-6%
     Route: 065
  3. PROPOFOL. [Suspect]
     Active Substance: PROPOFOL
     Indication: INDUCTION OF ANAESTHESIA
     Dosage: 3 MILLIGRAM/KILOGRAM
     Route: 040
  4. ONDANSETRON [Suspect]
     Active Substance: ONDANSETRON
     Indication: ANTIEMETIC SUPPORTIVE CARE
     Dosage: 8 MILLIGRAM
     Route: 042
  5. REMIFENTANIL [Suspect]
     Active Substance: REMIFENTANIL
     Indication: INDUCTION OF ANAESTHESIA
     Dosage: 0.05-0.15MG/KG/MIN
     Route: 065
  6. ROCURONIUM [Concomitant]
     Active Substance: ROCURONIUM BROMIDE
     Indication: TRACHEAL OPERATION
     Dosage: 0.3 MILLIGRAM/KILOGRAM
     Route: 065
  7. DEXAMETHASONE. [Suspect]
     Active Substance: DEXAMETHASONE
     Indication: ANTIEMETIC SUPPORTIVE CARE
     Dosage: 4 MILLIGRAM
     Route: 042
  8. MIDAZOLAM [Suspect]
     Active Substance: MIDAZOLAM HYDROCHLORIDE
     Indication: PREMEDICATION
     Dosage: 1 MILLIGRAM
     Route: 042

REACTIONS (9)
  - Pulmonary air leakage [Recovered/Resolved]
  - Procedural vomiting [Recovered/Resolved]
  - Dyspnoea [Recovered/Resolved]
  - Tracheal injury [Recovered/Resolved]
  - Emphysema [Recovered/Resolved]
  - Retching [Recovered/Resolved]
  - Pneumomediastinum [Recovered/Resolved]
  - Subcutaneous emphysema [Recovered/Resolved]
  - Procedural nausea [Recovered/Resolved]
